FAERS Safety Report 23346121 (Version 2)
Quarter: 2024Q2

REPORT INFORMATION
  Report Type: Spontaneous
  Country: FR (occurrence: FR)
  Receive Date: 20231228
  Receipt Date: 20240618
  Transmission Date: 20240716
  Serious: Yes (Hospitalization)
  Sender: FDA-Public Use
  Company Number: None

PATIENT
  Age: 26 Year
  Sex: Male

DRUGS (3)
  1. TRAMADOL [Suspect]
     Active Substance: TRAMADOL\TRAMADOL HYDROCHLORIDE
     Indication: Product used for unknown indication
     Dosage: 200 MILLIGRAM, QD (200MG/D AND UP TO 400 MG/D))
     Route: 048
     Dates: start: 2019
  2. BROMAZEPAM [Suspect]
     Active Substance: BROMAZEPAM
     Indication: Product used for unknown indication
     Dosage: 18-24MG/D AND UP 42-48 MILLIGRAM/DAY)
     Route: 048
     Dates: start: 2012
  3. VALIUM [Suspect]
     Active Substance: DIAZEPAM
     Indication: Product used for unknown indication
     Dosage: 20-30MG/D AND UP TO 60 MG/D)
     Route: 048
     Dates: start: 2012

REACTIONS (1)
  - Drug use disorder [Recovering/Resolving]

NARRATIVE: CASE EVENT DATE: 20190101
